FAERS Safety Report 6403928-6 (Version None)
Quarter: 2009Q4

REPORT INFORMATION
  Report Type: 
  Country: None (occurrence: None)
  Receive Date: 20091016
  Receipt Date: 20090714
  Transmission Date: 20100525
  Serious: Yes (Hospitalization)
  Sender: FDA-Public Use
  Company Number: US-ALEXION-A200900577

PATIENT
  Sex: Female

DRUGS (22)
  1. SOLIRIS [Suspect]
     Indication: PAROXYSMAL NOCTURNAL HAEMOGLOBINURIA
     Dosage: 600 MG, QW
     Route: 042
     Dates: start: 20070608, end: 20070601
  2. SOLIRIS [Suspect]
     Dosage: 900 MG, Q2W
     Route: 042
     Dates: start: 20070706
  3. ASPIRIN [Concomitant]
     Dosage: 81 MG, QOD
     Dates: start: 20061229
  4. CATAPRES-TTS-1 [Concomitant]
     Dosage: 0.3 MG/24 HR, WEEKLY
     Route: 061
     Dates: start: 20090218
  5. DIOVAN                             /01319601/ [Concomitant]
     Dosage: 80 MG, QD
     Dates: start: 20090501
  6. DIPHENOXYLATE HCL AND ATROPINE SULFATE [Concomitant]
     Dosage: 2.5-0.25 MG, PRN, QID
     Dates: start: 20071003
  7. EXJADE [Concomitant]
     Dosage: 1000 MG, QD
     Dates: start: 20070205
  8. FOLIC ACID [Concomitant]
     Dosage: 1 MG, QD
     Dates: start: 20050922
  9. FUROSEMIDE [Concomitant]
     Dosage: 40 MG, PRN, QD
     Dates: start: 20090619
  10. GABAPENTIN [Concomitant]
     Dosage: 300 MG, QD, BEDTIME
     Dates: start: 20080522
  11. HUMALOG [Concomitant]
     Dosage: 2 UT, Q LUNCH, BG-100/30}180
     Dates: start: 20090128
  12. ACETAMINOPHEN AND HYDROCODONE BITARTRATE [Concomitant]
     Dosage: 7.5/500 MG , QD, 1.5 TABLET QHS
     Dates: start: 20081229
  13. LISINOPRIL [Concomitant]
     Dosage: 40 MG, BID
     Dates: start: 20090403
  14. LORAZEPAM [Concomitant]
     Dosage: 0.25-0.5 MG, PRN, QD
     Dates: start: 20090508
  15. NIFEDIPINE [Concomitant]
     Dosage: 90 MG, BID, Q12H
     Dates: start: 20090403
  16. OMEPRAZOLE [Concomitant]
     Dosage: 40 MG, BID
     Dates: start: 20090504
  17. PREDNISONE [Concomitant]
     Dosage: 30 MG, QD
     Dates: start: 20090605
  18. RENA-VITE [Concomitant]
     Dosage: UNK
     Dates: start: 20070906
  19. RENVELA [Concomitant]
     Dosage: 800 MG, 4 TABLETS WITH MEALS, 1 TABLET WITH SNACKS
     Dates: start: 20081117
  20. SOTALOL HCL [Concomitant]
     Dosage: 80 MG, BID
     Dates: start: 20090605
  21. STARLIX [Concomitant]
     Dosage: 120 MG, TID
     Dates: start: 20090119
  22. TYLENOL (CAPLET) [Concomitant]
     Indication: PAIN
     Dosage: 2 CAPSULES, PRN
     Dates: start: 20071016

REACTIONS (3)
  - PYELONEPHRITIS [None]
  - SEPSIS [None]
  - URETERIC OBSTRUCTION [None]
